FAERS Safety Report 20847483 (Version 1)
Quarter: 2022Q2

REPORT INFORMATION
  Report Type: Report from Study
  Country: US (occurrence: US)
  Receive Date: 20220519
  Receipt Date: 20220519
  Transmission Date: 20220721
  Serious: Yes (Other)
  Sender: FDA-Public Use
  Company Number: US-TAKEDA-US201932343

PATIENT
  Age: 70 Year
  Sex: Female

DRUGS (8)
  1. TEDUGLUTIDE [Suspect]
     Active Substance: TEDUGLUTIDE
     Indication: Short-bowel syndrome
     Dosage: 0.264 UNK
     Route: 058
     Dates: start: 20190919
  2. TEDUGLUTIDE [Suspect]
     Active Substance: TEDUGLUTIDE
     Indication: Short-bowel syndrome
     Dosage: 0.264 UNK
     Route: 058
     Dates: start: 20190919
  3. TEDUGLUTIDE [Suspect]
     Active Substance: TEDUGLUTIDE
     Indication: Short-bowel syndrome
     Dosage: 0.264 UNK
     Route: 058
     Dates: start: 20190919
  4. TEDUGLUTIDE [Suspect]
     Active Substance: TEDUGLUTIDE
     Indication: Short-bowel syndrome
     Dosage: 0.264 UNK
     Route: 058
     Dates: start: 20190919
  5. TEDUGLUTIDE [Suspect]
     Active Substance: TEDUGLUTIDE
     Dosage: 1.32 MILLIGRAM, QD
     Route: 058
     Dates: start: 20210706, end: 20220513
  6. TEDUGLUTIDE [Suspect]
     Active Substance: TEDUGLUTIDE
     Dosage: 1.32 MILLIGRAM, QD
     Route: 058
     Dates: start: 20210706, end: 20220513
  7. TEDUGLUTIDE [Suspect]
     Active Substance: TEDUGLUTIDE
     Dosage: 1.32 MILLIGRAM, QD
     Route: 058
     Dates: start: 20210706, end: 20220513
  8. TEDUGLUTIDE [Suspect]
     Active Substance: TEDUGLUTIDE
     Dosage: 1.32 MILLIGRAM, QD
     Route: 058
     Dates: start: 20210706, end: 20220513

REACTIONS (6)
  - Hip fracture [Unknown]
  - Fall [Unknown]
  - Constipation [Unknown]
  - Therapy interrupted [Unknown]
  - Product distribution issue [Unknown]
  - Product dose omission issue [Unknown]

NARRATIVE: CASE EVENT DATE: 20190930
